FAERS Safety Report 8261356-5 (Version None)
Quarter: 2012Q2

REPORT INFORMATION
  Report Type: 
  Country: None (occurrence: None)
  Receive Date: 20120405
  Receipt Date: 20120326
  Transmission Date: 20120825
  Serious: Yes (Death, Hospitalization, Other)
  Sender: FDA-Public Use
  Company Number: JP-PFIZER INC-2010172685

PATIENT
  Age: 62 Year
  Sex: Male
  Weight: 64.6 kg

DRUGS (20)
  1. ATORVASTATIN CALCIUM [Concomitant]
     Dosage: UNK
     Dates: start: 20050228
  2. DIART [Concomitant]
     Dosage: UNK
     Dates: start: 20071018
  3. LENDORMIN [Concomitant]
     Dosage: UNK
     Dates: start: 20090122
  4. SIGMART [Concomitant]
     Dosage: UNK
     Dates: start: 20071018, end: 20080611
  5. TICLOPIDINE HCL [Concomitant]
     Dosage: UNK
     Dates: start: 20050228
  6. LANIRAPID [Concomitant]
     Dosage: UNK
     Dates: start: 20071018, end: 20080806
  7. AMIODARONE [Suspect]
     Indication: VENTRICULAR TACHYCARDIA
     Dosage: 100 MG, 1X/DAY
     Route: 048
     Dates: start: 20080807, end: 20101108
  8. LASIX [Concomitant]
     Dosage: UNK
     Dates: start: 20050228
  9. CARVEDILOL [Concomitant]
     Dosage: UNK
     Dates: start: 20050228, end: 20060209
  10. AMIODARONE HYDROCHLORIDE [Suspect]
     Indication: VENTRICULAR TACHYCARDIA
     Dosage: 100 MG, 1X/DAY
     Route: 048
     Dates: start: 20070801, end: 20080806
  11. ASPIRIN [Concomitant]
     Dosage: UNK
     Dates: start: 20050228
  12. AMOBAN [Concomitant]
     Dosage: UNK
     Dates: start: 20090514
  13. GLYCERYL TRINITRATE [Concomitant]
     Dosage: UNK
     Dates: start: 20100422
  14. AMIODARONE [Suspect]
     Indication: ATRIAL FIBRILLATION
  15. VALSARTAN [Concomitant]
     Dosage: UNK
     Dates: start: 20050228
  16. WARFARIN [Concomitant]
     Dosage: UNK
     Dates: start: 20050228
  17. ZOLPIDEM [Concomitant]
     Dosage: UNK
     Dates: start: 20081012
  18. LOXOPROFEN [Concomitant]
     Dosage: UNK
     Dates: start: 20090319
  19. SUNRYTHM [Concomitant]
     Dosage: UNK
     Dates: start: 20050228
  20. CANDESARTAN CILEXETIL [Concomitant]
     Dosage: UNK
     Dates: start: 20071018

REACTIONS (4)
  - INTERSTITIAL LUNG DISEASE [None]
  - PNEUMOTHORAX [None]
  - PNEUMONIA [None]
  - PNEUMOMEDIASTINUM [None]
